FAERS Safety Report 14414003 (Version 2)
Quarter: 2018Q1

REPORT INFORMATION
  Report Type: Spontaneous
  Country: NO (occurrence: NO)
  Receive Date: 20180119
  Receipt Date: 20180301
  Transmission Date: 20180509
  Serious: Yes (Other)
  Sender: FDA-Public Use
  Company Number: NO-BAUSCH-BL-2018-001244

PATIENT
  Age: 67 Year
  Sex: Male

DRUGS (7)
  1. CHLORAMPHENICOL [Suspect]
     Active Substance: CHLORAMPHENICOL
     Indication: CHOLECYSTITIS
     Route: 065
  2. GENTAMICIN. [Suspect]
     Active Substance: GENTAMICIN
     Indication: CHOLECYSTITIS
     Route: 030
  3. ERYTHROMYCIN. [Suspect]
     Active Substance: ERYTHROMYCIN
     Indication: CHOLECYSTITIS
     Route: 065
  4. CEFALOTIN [Suspect]
     Active Substance: CEPHALOTHIN
     Dosage: HALF THE DOSE
     Route: 042
  5. LINCOCIN [Suspect]
     Active Substance: LINCOMYCIN
     Indication: CHOLECYSTITIS
     Route: 065
  6. BACTRIM [Suspect]
     Active Substance: SULFAMETHOXAZOLE\TRIMETHOPRIM
     Indication: CHOLECYSTITIS
     Route: 065
  7. CEFALOTIN [Suspect]
     Active Substance: CEPHALOTHIN
     Indication: CHOLECYSTITIS
     Route: 042

REACTIONS (3)
  - Nephropathy toxic [Unknown]
  - Renal injury [Unknown]
  - Drug interaction [Unknown]
